FAERS Safety Report 4295152-0 (Version None)
Quarter: 2004Q1

REPORT INFORMATION
  Report Type: 
  Country: None (occurrence: None)
  Receive Date: 20040211
  Receipt Date: 20040128
  Transmission Date: 20041129
  Serious: Yes (Other)
  Sender: FDA-Public Use
  Company Number: US_000541220

PATIENT
  Age: 57 Year
  Sex: Female

DRUGS (3)
  1. HUMULIN R [Suspect]
     Indication: BLOOD GLUCOSE INCREASED
  2. HUMULIN N [Suspect]
     Indication: DIABETES MELLITUS INSULIN-DEPENDENT
     Dosage: 40 U/IN THE MORNING
  3. HUMULIN-HUMAN INSULIN (RDNA) [Suspect]
     Indication: DIABETES MELLITUS

REACTIONS (4)
  - DIABETES MELLITUS INADEQUATE CONTROL [None]
  - DRUG HYPERSENSITIVITY [None]
  - LOSS OF CONSCIOUSNESS [None]
  - SHOCK HYPOGLYCAEMIC [None]
